FAERS Safety Report 13819404 (Version 2)
Quarter: 2018Q1

REPORT INFORMATION
  Report Type: Report from Study
  Country: US (occurrence: US)
  Receive Date: 20170731
  Receipt Date: 20180201
  Transmission Date: 20180508
  Serious: No
  Sender: FDA-Public Use
  Company Number: US-EXELIXIS-CABO-17008387

PATIENT
  Age: 68 Year
  Sex: Male

DRUGS (11)
  1. OMEPRAZOLE. [Concomitant]
     Active Substance: OMEPRAZOLE
  2. AMIODARONE [Concomitant]
     Active Substance: AMIODARONE
  3. COUMADIN [Concomitant]
     Active Substance: WARFARIN SODIUM
  4. CENTRUM [Concomitant]
     Active Substance: VITAMINS
  5. CABOMETYX [Suspect]
     Active Substance: CABOZANTINIB S-MALATE
     Dosage: 20 MG, QD
     Route: 048
     Dates: end: 20170528
  6. VITAMIN B12 [Concomitant]
     Active Substance: CYANOCOBALAMIN
  7. FISH OIL [Concomitant]
     Active Substance: FISH OIL
  8. METOPROLOL. [Concomitant]
     Active Substance: METOPROLOL
  9. VITAMIN D3 [Concomitant]
     Active Substance: CHOLECALCIFEROL
  10. CABOMETYX [Suspect]
     Active Substance: CABOZANTINIB S-MALATE
     Indication: RENAL CANCER
     Dosage: 60 MG, QD
     Route: 048
     Dates: start: 20161229, end: 201702
  11. CALCIUM GLUCONATE. [Concomitant]
     Active Substance: CALCIUM GLUCONATE

REACTIONS (2)
  - Blister [Unknown]
  - Diarrhoea [Unknown]

NARRATIVE: CASE EVENT DATE: 201702
